FAERS Safety Report 5670363-8 (Version None)
Quarter: 2008Q1

REPORT INFORMATION
  Report Type: 
  Country: None (occurrence: None)
  Receive Date: 20080314
  Receipt Date: 20080314
  Transmission Date: 20080703
  Serious: Yes (Other)
  Sender: FDA-Public Use
  Company Number: None

PATIENT
  Age: 69 Year
  Sex: Female
  Weight: 75.7507 kg

DRUGS (1)
  1. BONIVA [Suspect]
     Indication: OSTEOPENIA
     Dosage: 150 MG 1 PER MONTH PO
     Route: 048
     Dates: start: 20050910, end: 20080122

REACTIONS (2)
  - BONE DISORDER [None]
  - QUALITY OF LIFE DECREASED [None]
